FAERS Safety Report 19174060 (Version 2)
Quarter: 2022Q2

REPORT INFORMATION
  Report Type: Spontaneous
  Country: US (occurrence: US)
  Receive Date: 20210423
  Receipt Date: 20220505
  Transmission Date: 20220721
  Serious: No
  Sender: FDA-Public Use
  Company Number: US-PFIZER INC-2021354350

PATIENT
  Age: 64 Year
  Sex: Male
  Weight: 239 kg

DRUGS (7)
  1. XELJANZ [Suspect]
     Active Substance: TOFACITINIB CITRATE
     Indication: Spondyloarthropathy
     Dosage: 5 MG, 2X/DAY(TWICE A DAY)
     Route: 048
     Dates: start: 20201229
  2. XELJANZ [Suspect]
     Active Substance: TOFACITINIB CITRATE
     Indication: Rheumatoid arthritis
     Dosage: 5 MG
  3. XELJANZ [Suspect]
     Active Substance: TOFACITINIB CITRATE
     Indication: Arthropathy
  4. XELJANZ [Suspect]
     Active Substance: TOFACITINIB CITRATE
     Indication: Psoriatic arthropathy
  5. VICODIN HP [Concomitant]
     Active Substance: ACETAMINOPHEN\HYDROCODONE BITARTRATE
     Dosage: UNK (10 MG-300 MG)
  6. AVAPRO [Concomitant]
     Active Substance: IRBESARTAN
     Dosage: 150 MG
  7. ETODOLAC [Concomitant]
     Active Substance: ETODOLAC
     Dosage: UNK

REACTIONS (3)
  - Drug ineffective [Unknown]
  - Psoriasis [Unknown]
  - Anxiety [Unknown]
